FAERS Safety Report 6987952-0 (Version None)
Quarter: 2010Q3

REPORT INFORMATION
  Report Type: 
  Country: None (occurrence: None)
  Receive Date: 20100916
  Receipt Date: 20100730
  Transmission Date: 20110219
  Serious: No
  Sender: FDA-Public Use
  Company Number: US-ABBOTT-10P-163-0659817-00

PATIENT
  Age: 60 Year
  Sex: Female
  Weight: 74.91 kg

DRUGS (1)
  1. TRILIPIX [Suspect]
     Indication: BLOOD CHOLESTEROL

REACTIONS (1)
  - DIARRHOEA [None]
